FAERS Safety Report 8394448-0 (Version None)
Quarter: 2012Q2

REPORT INFORMATION
  Report Type: 
  Country: None (occurrence: None)
  Receive Date: 20120525
  Receipt Date: 20120525
  Transmission Date: 20120825
  Serious: Yes (Death)
  Sender: FDA-Public Use
  Company Number: None

PATIENT
  Sex: Male
  Weight: 8.6183 kg

DRUGS (1)
  1. ZITHROMAX [Suspect]
     Indication: RESPIRATORY DISORDER
     Dosage: IV
     Route: 042
     Dates: start: 20120414, end: 20120414

REACTIONS (1)
  - CARDIO-RESPIRATORY ARREST [None]
